FAERS Safety Report 6763988-X (Version None)
Quarter: 2010Q2

REPORT INFORMATION
  Report Type: 
  Country: None (occurrence: None)
  Receive Date: 20100608
  Receipt Date: 20100528
  Transmission Date: 20101027
  Serious: Yes (Hospitalization)
  Sender: FDA-Public Use
  Company Number: 2008-03256

PATIENT
  Age: 77 Year
  Sex: Female
  Weight: 56 kg

DRUGS (12)
  1. VELCADE [Suspect]
     Indication: MANTLE CELL LYMPHOMA
     Dosage: 1.3 MG/M2
     Dates: start: 20080201, end: 20080804
  2. RITUXIMAB (RITUXIMAB) SUSPENSION FOR INJECTION [Suspect]
     Indication: MANTLE CELL LYMPHOMA
     Dosage: 375 MG/M2
     Dates: end: 20080804
  3. ADRIBLASTINE (DOXORUBICIN) INJECTION [Suspect]
     Indication: MANTLE CELL LYMPHOMA
     Dosage: 9 MG/M2
     Dates: end: 20080804
  4. DEXAMETHASONE TAB [Suspect]
     Indication: MANTLE CELL LYMPHOMA
     Dosage: 20 MG/M2
     Dates: end: 20080804
  5. CHLORAMBUCIL (CHLORAMBUCIL) ORAL DRUG UNSPECIFIED FORM [Suspect]
     Indication: MANTLE CELL LYMPHOMA
     Dosage: 12 MG
     Dates: end: 20080804
  6. GRANOCYTE (LENOGRASTIM) [Concomitant]
  7. VALACYCLOVIR HCL [Concomitant]
  8. LEDERFOLIN (CALCIUM FOLINATE) [Concomitant]
  9. BACTRIN (SULFAMETHOXAZOLE, TRIMETHOPRIM) [Concomitant]
  10. PAROXETINE HYDROCHLORIDE [Concomitant]
  11. ZOLPIDEM [Concomitant]
  12. OMEPRAZOLE [Concomitant]

REACTIONS (9)
  - ASTHENIA [None]
  - CRANIAL NERVE DISORDER [None]
  - DIPLOPIA [None]
  - FACIAL PAIN [None]
  - HEADACHE [None]
  - MOTOR DYSFUNCTION [None]
  - NEUROTOXICITY [None]
  - POLYNEUROPATHY [None]
  - VISION BLURRED [None]
